FAERS Safety Report 11294612 (Version 1)
Quarter: 2015Q3

REPORT INFORMATION
  Report Type: Spontaneous
  Country: US (occurrence: None)
  Receive Date: 20150722
  Receipt Date: 20150722
  Transmission Date: 20151125
  Serious: Yes (Hospitalization)
  Sender: FDA-Public Use
  Company Number: None

PATIENT
  Age: 76 Year
  Sex: Male
  Weight: 80.9 kg

DRUGS (10)
  1. FIBERCON [Concomitant]
     Active Substance: CALCIUM POLYCARBOPHIL
  2. TOPROL XL [Concomitant]
     Active Substance: METOPROLOL SUCCINATE
  3. ASPIRIN. [Concomitant]
     Active Substance: ASPIRIN
  4. FINASTERIDE. [Concomitant]
     Active Substance: FINASTERIDE
  5. NEXIUM [Concomitant]
     Active Substance: ESOMEPRAZOLE MAGNESIUM
  6. XGEVA [Concomitant]
     Active Substance: DENOSUMAB
  7. AFINITOR [Suspect]
     Active Substance: EVEROLIMUS
     Indication: RENAL CANCER
     Route: 048
     Dates: start: 20150710
  8. SYNTHROID [Concomitant]
     Active Substance: LEVOTHYROXINE SODIUM
  9. NORVASC [Concomitant]
     Active Substance: AMLODIPINE BESYLATE
  10. VITAMIN B [Concomitant]
     Active Substance: VITAMIN B

REACTIONS (1)
  - Oedema peripheral [None]

NARRATIVE: CASE EVENT DATE: 20150718
